FAERS Safety Report 9530271 (Version 2)
Quarter: 2013Q3

REPORT INFORMATION
  Report Type: Spontaneous
  Country: US (occurrence: US)
  Receive Date: 20130917
  Receipt Date: 20130917
  Transmission Date: 20140515
  Serious: Yes (Life-Threatening, Other)
  Sender: FDA-Public Use
  Company Number: US-RB-056388-13

PATIENT
  Age: 66 Year
  Sex: Female

DRUGS (6)
  1. SUBOXONE FILM [Suspect]
     Indication: DRUG DEPENDENCE
     Dosage: SUBOXONE FILM
     Route: 060
     Dates: start: 2013, end: 201307
  2. PRILOSEC [Concomitant]
     Indication: GASTROOESOPHAGEAL REFLUX DISEASE
     Route: 048
  3. ADVAIR [Concomitant]
     Indication: EMPHYSEMA
     Dosage: INHALATION; DOSING DETAILS UNKNOWN
  4. SPIRIVA [Concomitant]
     Indication: EMPHYSEMA
     Dosage: INHALATION; DOSING DETAILS UNKNOWN
  5. NICOTINE [Concomitant]
     Dosage: 2 PACKS A DAY
  6. NICOTINE [Concomitant]
     Indication: PRODUCT USED FOR UNKNOWN INDICATION
     Dosage: 3 CIGARETTES DAILY

REACTIONS (2)
  - Emphysema [Not Recovered/Not Resolved]
  - Condition aggravated [Not Recovered/Not Resolved]
